FAERS Safety Report 6004520-8 (Version None)
Quarter: 2008Q4

REPORT INFORMATION
  Report Type: 
  Country: None (occurrence: None)
  Receive Date: 20081216
  Receipt Date: 20081018
  Transmission Date: 20090506
  Serious: No
  Sender: FDA-Public Use
  Company Number: US-BAYER-200814709BCC

PATIENT
  Age: 23 Year
  Sex: Female
  Weight: 48 kg

DRUGS (2)
  1. ALEVE [Suspect]
     Indication: PAIN PROPHYLAXIS
     Dosage: TOTAL DAILY DOSE: 2200 MG  UNIT DOSE: 220 MG
     Route: 048
     Dates: start: 20081018
  2. ALCOHOL [Concomitant]

REACTIONS (1)
  - NO ADVERSE EVENT [None]
